FAERS Safety Report 6714554-3 (Version None)
Quarter: 2010Q2

REPORT INFORMATION
  Report Type: 
  Country: None (occurrence: None)
  Receive Date: 20100506
  Receipt Date: 20100422
  Transmission Date: 20101027
  Serious: Yes (Other)
  Sender: FDA-Public Use
  Company Number: SE-MYLANLABS-2010S1006891

PATIENT
  Age: 75 Year
  Sex: Female

DRUGS (1)
  1. LOSARTAN/HYDROCHLOORTHIAZIDE [Suspect]
     Indication: DRUG USE FOR UNKNOWN INDICATION

REACTIONS (3)
  - COLD SWEAT [None]
  - HEART RATE DECREASED [None]
  - HYPERSENSITIVITY [None]
